FAERS Safety Report 19903570 (Version 1)
Quarter: 2021Q4

REPORT INFORMATION
  Report Type: Spontaneous
  Country: US (occurrence: US)
  Receive Date: 20211001
  Receipt Date: 20211001
  Transmission Date: 20220304
  Serious: Yes (Other)
  Sender: FDA-Public Use
  Company Number: US-ABBVIE-21K-163-4102233-00

PATIENT
  Sex: Female
  Weight: 68.55 kg

DRUGS (1)
  1. HUMIRA [Suspect]
     Active Substance: ADALIMUMAB
     Indication: Crohn^s disease
     Route: 058
     Dates: start: 2006

REACTIONS (4)
  - Short-bowel syndrome [Not Recovered/Not Resolved]
  - Adhesion [Unknown]
  - Crohn^s disease [Unknown]
  - Drug resistance [Unknown]

NARRATIVE: CASE EVENT DATE: 20130101
